FAERS Safety Report 8400151-0 (Version None)
Quarter: 2012Q2

REPORT INFORMATION
  Report Type: 
  Country: None (occurrence: None)
  Receive Date: 20120531
  Receipt Date: 20120521
  Transmission Date: 20120825
  Serious: Yes (Hospitalization)
  Sender: FDA-Public Use
  Company Number: JP-VERTEX PHARMACEUTICALS INC.-AE-2012-007161

PATIENT
  Sex: Male

DRUGS (13)
  1. PEG-INTRON [Concomitant]
     Route: 058
     Dates: start: 20070928, end: 20090206
  2. REBETOL [Concomitant]
     Dates: start: 20120509, end: 20120514
  3. LOXONIN [Concomitant]
  4. URSO 250 [Concomitant]
  5. PEG-INTRON [Concomitant]
     Dates: start: 20120509, end: 20120514
  6. ALLOPURINOL [Concomitant]
  7. LENDORMIN [Concomitant]
  8. REBETOL [Concomitant]
     Route: 048
     Dates: start: 20061110, end: 20070426
  9. VITAMEDIN [Concomitant]
  10. VX-950 [Suspect]
     Indication: HEPATITIS C
     Route: 048
     Dates: start: 20120509, end: 20120514
  11. PEG-INTRON [Concomitant]
     Route: 058
     Dates: start: 20061110, end: 20070426
  12. CONIEL [Concomitant]
  13. REBETOL [Concomitant]
     Route: 048
     Dates: start: 20070928, end: 20090206

REACTIONS (1)
  - RENAL IMPAIRMENT [None]
